FAERS Safety Report 14664355 (Version 1)
Quarter: 2018Q1

REPORT INFORMATION
  Report Type: Spontaneous
  Country: FR (occurrence: FR)
  Receive Date: 20180321
  Receipt Date: 20180321
  Transmission Date: 20180509
  Serious: Yes (Other)
  Sender: FDA-Public Use
  Company Number: FR-PFIZER INC-2018108751

PATIENT
  Age: 67 Year
  Sex: Male
  Weight: 73 kg

DRUGS (14)
  1. METHYLPREDNISOLONE MYLAN /00049602/ [Suspect]
     Active Substance: METHYLPREDNISOLONE SODIUM SUCCINATE
     Indication: LYMPHOMA
     Dosage: 75 MG, CYCLIC
     Route: 042
     Dates: start: 20171228, end: 20171228
  2. NIVESTIM [Concomitant]
     Active Substance: FILGRASTIM
     Indication: PROPHYLAXIS
     Dosage: 30 MILLION IU, 1X/DAY FOR 6 CONSECUTIVE DAYS AFTER THE CURE
     Route: 042
  3. PRIMPERAN [Concomitant]
     Active Substance: METOCLOPRAMIDE HYDROCHLORIDE
     Indication: NAUSEA
     Dosage: 30 MG, DAILY (1 DF IN THE MORNING, AT NOON, AND IN THE EVENING IF THERE IS NAUSEA)
     Route: 048
  4. ORACILLINE /00001801/ [Concomitant]
     Active Substance: PENICILLIN V
     Dosage: 2 MILLION IU, DAILY(IN THE MORNING AND IN THE EVENING)
     Route: 048
  5. VINCRISTINE SULFATE. [Suspect]
     Active Substance: VINCRISTINE SULFATE
     Indication: LYMPHOMA
     Dosage: 2 MG, CYCLIC
     Route: 042
     Dates: start: 20170912, end: 20171228
  6. MABTHERA [Suspect]
     Active Substance: RITUXIMAB
     Indication: LYMPHOMA
     Dosage: 1400 MG, CYCLIC
     Route: 058
     Dates: start: 20170912, end: 20171228
  7. CORTANCYL [Concomitant]
     Active Substance: PREDNISONE
     Dosage: 75 MG, 1X/DAY
     Route: 048
     Dates: start: 20171229, end: 20180101
  8. INNOVAIR [Concomitant]
     Active Substance: BECLOMETHASONE DIPROPIONATE\FORMOTEROL
     Dosage: UNK
     Route: 055
  9. ZELITREX [Concomitant]
     Active Substance: VALACYCLOVIR HYDROCHLORIDE
     Indication: PROPHYLAXIS
     Dosage: 1000 MG, DAILY (IN THE MORNING AND IN THE EVENING)
     Route: 048
  10. BISOCE [Concomitant]
     Active Substance: BISOPROLOL
     Dosage: 2.5 MG, 1X/DAY
     Route: 048
     Dates: start: 20171228, end: 20180118
  11. BACTRIM [Concomitant]
     Active Substance: SULFAMETHOXAZOLE\TRIMETHOPRIM
     Indication: PROPHYLAXIS
     Dosage: 3 DF, DAILY (ON MONDAY, WEDNESDAY AND FRIDAY)
     Route: 048
  12. DOXORUBICINE TEVA [Suspect]
     Active Substance: DOXORUBICIN
     Indication: LYMPHOMA
     Dosage: 93 MG, CYCLIC
     Route: 042
     Dates: start: 20170912, end: 20171228
  13. ENDOXAN /00021101/ [Suspect]
     Active Substance: CYCLOPHOSPHAMIDE
     Indication: LYMPHOMA
     Dosage: 1400 MG, CYCLIC
     Route: 042
     Dates: start: 20170912, end: 20171228
  14. ZOPHREN /00955301/ [Concomitant]
     Active Substance: ONDANSETRON
     Indication: NAUSEA
     Dosage: UNK
     Route: 048

REACTIONS (1)
  - Deep vein thrombosis [Not Recovered/Not Resolved]

NARRATIVE: CASE EVENT DATE: 20180112
